FAERS Safety Report 12235942 (Version 15)
Quarter: 2017Q2

REPORT INFORMATION
  Report Type: Report from Study
  Country: US (occurrence: US)
  Receive Date: 20160404
  Receipt Date: 20170602
  Transmission Date: 20170830
  Serious: Yes (Hospitalization)
  Sender: FDA-Public Use
  Company Number: US-ACTELION-A-US2016-133868

PATIENT
  Age: 59 Year
  Sex: Female
  Weight: 57.6 kg

DRUGS (6)
  1. OPSUMIT [Suspect]
     Active Substance: MACITENTAN
     Indication: PULMONARY ARTERIAL HYPERTENSION
     Dosage: 10 MG, QD
     Route: 048
     Dates: start: 20140506
  2. ORENITRAM [Suspect]
     Active Substance: TREPROSTINIL
     Indication: PULMONARY ARTERIAL HYPERTENSION
     Dosage: 1 MG, TID
     Route: 065
     Dates: start: 20160909
  3. ORENITRAM [Suspect]
     Active Substance: TREPROSTINIL
     Dosage: 0.75 MG, TID
     Route: 048
     Dates: start: 20160831
  4. FLOLAN [Concomitant]
     Active Substance: EPOPROSTENOL SODIUM
     Dosage: UNK
     Dates: start: 201704
  5. NARCAN [Suspect]
     Active Substance: NALOXONE HYDROCHLORIDE
     Indication: PRODUCT USED FOR UNKNOWN INDICATION
     Route: 065
  6. TYVASO [Suspect]
     Active Substance: TREPROSTINIL
     Indication: PULMONARY ARTERIAL HYPERTENSION
     Dosage: 18-54 MCG, QID
     Route: 055
     Dates: start: 20141208

REACTIONS (33)
  - Abdominal distension [Unknown]
  - Abdominal discomfort [Unknown]
  - Syncope [Unknown]
  - Fatigue [Unknown]
  - Catheter site pruritus [Unknown]
  - Gastric disorder [Unknown]
  - Abdominal pain [Unknown]
  - Vitamin B12 deficiency [Unknown]
  - Pain [Unknown]
  - Nervousness [Unknown]
  - Hypoaesthesia [Unknown]
  - Insomnia [Unknown]
  - Pain in jaw [Recovering/Resolving]
  - Cough [Unknown]
  - Catheter site erythema [Unknown]
  - Dysphagia [Unknown]
  - Headache [Recovering/Resolving]
  - Gallbladder pain [Unknown]
  - Arthralgia [Recovering/Resolving]
  - Rash generalised [Unknown]
  - Hepatic pain [Unknown]
  - Constipation [Unknown]
  - Depressed mood [Unknown]
  - Dizziness [Unknown]
  - Loss of consciousness [Unknown]
  - Cardiac failure [Recovering/Resolving]
  - Presyncope [Unknown]
  - Myalgia [Unknown]
  - Memory impairment [Unknown]
  - Diarrhoea [Unknown]
  - Asthenia [Unknown]
  - Tachycardia [Unknown]
  - Eye swelling [Unknown]

NARRATIVE: CASE EVENT DATE: 20160729
